FAERS Safety Report 7419743-0 (Version None)
Quarter: 2011Q2

REPORT INFORMATION
  Report Type: 
  Country: None (occurrence: None)
  Receive Date: 20110413
  Receipt Date: 20110413
  Transmission Date: 20111010
  Serious: Yes (Hospitalization, Other)
  Sender: FDA-Public Use
  Company Number: None

PATIENT
  Age: 77 Year
  Sex: Male
  Weight: 108.8633 kg

DRUGS (13)
  1. METFORMIN HYDROCHLORIDE [Suspect]
     Indication: DIABETES MELLITUS
     Dosage: 2 TABS X 2 DAILY
     Dates: start: 20030101, end: 20110316
  2. COREG [Suspect]
  3. PLAVIX [Concomitant]
  4. POTASSIUM [Concomitant]
  5. WARFARIN [Concomitant]
  6. IRON TAB [Concomitant]
  7. GLYBURIDE [Suspect]
  8. GINTOL [Concomitant]
  9. ENALAPRIL [Concomitant]
  10. LASIX [Concomitant]
  11. PROTONIX [Concomitant]
  12. PAIN PILL [Concomitant]
  13. DETROL LA [Suspect]

REACTIONS (1)
  - CARDIAC FAILURE CONGESTIVE [None]
